FAERS Safety Report 7119304-7 (Version None)
Quarter: 2010Q4

REPORT INFORMATION
  Report Type: 
  Country: None (occurrence: None)
  Receive Date: 20101028
  Receipt Date: 20091216
  Transmission Date: 20110411
  Serious: Yes (Hospitalization, Other)
  Sender: FDA-Public Use
  Company Number: 1713747-2009-000016

PATIENT
  Sex: Female
  Weight: 88.4061 kg

DRUGS (1)
  1. DELFLEX W/ DEXTROSE 2.5% [Suspect]
     Indication: RENAL FAILURE CHRONIC
     Dosage: INTRAPERITONEALLY
     Route: 033
     Dates: start: 20091118

REACTIONS (2)
  - HOSPITALISATION [None]
  - PERITONITIS [None]
